FAERS Safety Report 6203795-X (Version None)
Quarter: 2009Q2

REPORT INFORMATION
  Report Type: 
  Country: None (occurrence: None)
  Receive Date: 20090526
  Receipt Date: 20090526
  Transmission Date: 20091009
  Serious: Yes (Other)
  Sender: FDA-Public Use
  Company Number: None

PATIENT
  Age: 46 Year
  Sex: Female
  Weight: 54.4316 kg

DRUGS (1)
  1. LUNESTA [Suspect]
     Indication: INSOMNIA
     Dosage: 3M ONCE A DAY
     Dates: start: 20080220, end: 20080223

REACTIONS (4)
  - ABNORMAL BEHAVIOUR [None]
  - LEGAL PROBLEM [None]
  - POISONING [None]
  - SOMNAMBULISM [None]
